FAERS Safety Report 23430247 (Version 4)
Quarter: 2025Q4

REPORT INFORMATION
  Report Type: Spontaneous
  Country: US (occurrence: US)
  Receive Date: 20240123
  Receipt Date: 20251108
  Transmission Date: 20260118
  Serious: No
  Sender: SANOFI AVENTIS
  Company Number: US-SA-SAC20240116000168

PATIENT
  Age: 23 Year
  Sex: Female

DRUGS (3)
  1. DUPIXENT [Suspect]
     Active Substance: DUPILUMAB
     Indication: Eczema
     Dosage: 600 MG, 1X
     Route: 058
     Dates: start: 20231214, end: 20231214
  2. DUPIXENT [Suspect]
     Active Substance: DUPILUMAB
     Indication: Dermatitis atopic
     Dosage: 300 MG, Q15D
     Route: 058
     Dates: start: 20231228
  3. DUPIXENT [Suspect]
     Active Substance: DUPILUMAB
     Dosage: 300 MG, QOW
     Route: 058
     Dates: start: 202312

REACTIONS (13)
  - Acne [Unknown]
  - Oral mucosal blistering [Unknown]
  - Eyelid pain [Unknown]
  - COVID-19 [Unknown]
  - Dry skin [Recovering/Resolving]
  - Stress [Unknown]
  - Swelling of eyelid [Unknown]
  - Erythema [Unknown]
  - Skin exfoliation [Recovering/Resolving]
  - Condition aggravated [Recovering/Resolving]
  - Dermatitis atopic [Unknown]
  - Therapeutic response shortened [Unknown]
  - Product dose omission in error [Unknown]

NARRATIVE: CASE EVENT DATE: 20231227
